FAERS Safety Report 17870516 (Version 1)
Quarter: 2020Q2

REPORT INFORMATION
  Report Type: Spontaneous
  Country: US (occurrence: US)
  Receive Date: 20200605
  Receipt Date: 20200605
  Transmission Date: 20200714
  Serious: Yes (Hospitalization)
  Sender: FDA-Public Use
  Company Number: None

PATIENT
  Sex: Female

DRUGS (1)
  1. SOLU-CORTEF [Suspect]
     Active Substance: HYDROCORTISONE SODIUM SUCCINATE
     Indication: IMPAIRED GASTRIC EMPTYING
     Dosage: ?          OTHER DOSE:20MG (0.4ML);OTHER ROUTE:JEJUNOSTOMY TUBE?
     Dates: start: 20200507

REACTIONS (1)
  - Hospitalisation [None]
